FAERS Safety Report 8815984 (Version 1)
Quarter: 2012Q4

REPORT INFORMATION
  Report Type: 
  Country: US (occurrence: US)
  Receive Date: 20120928
  Receipt Date: 20120928
  Transmission Date: 20130627
  Serious: No
  Sender: FDA-Public Use
  Company Number: US-VIIV HEALTHCARE LIMITED-A0941094A

PATIENT

DRUGS (1)
  1. EPZICOM [Suspect]
     Route: 048

REACTIONS (3)
  - Rash [Unknown]
  - Diarrhoea [Unknown]
  - Gastrointestinal disorder [Unknown]
